FAERS Safety Report 21872438 (Version 2)
Quarter: 2023Q1

REPORT INFORMATION
  Report Type: Spontaneous
  Country: US (occurrence: US)
  Receive Date: 20230117
  Receipt Date: 20230301
  Transmission Date: 20230417
  Serious: No
  Sender: FDA-Public Use
  Company Number: US-PFIZER INC-202300013465

PATIENT
  Age: 51 Year
  Sex: Female
  Weight: 48.99 kg

DRUGS (1)
  1. PAXLOVID [Suspect]
     Active Substance: NIRMATRELVIR\RITONAVIR
     Indication: COVID-19 treatment
     Dosage: 2-150MG NIRMATRAVIR AND 1-100MG RITONAVIR TWICE DAILY
     Dates: start: 20230109, end: 20230109

REACTIONS (2)
  - Wrong technique in product usage process [Recovered/Resolved]
  - Discomfort [Recovered/Resolved]

NARRATIVE: CASE EVENT DATE: 20230109
